FAERS Safety Report 7146114-7 (Version None)
Quarter: 2010Q4

REPORT INFORMATION
  Report Type: 
  Country: None (occurrence: None)
  Receive Date: 20101208
  Receipt Date: 20101206
  Transmission Date: 20110411
  Serious: Yes (Life-Threatening, Hospitalization)
  Sender: FDA-Public Use
  Company Number: US-MERCK-1010USA00475

PATIENT
  Age: 52 Year
  Sex: Male
  Weight: 101 kg

DRUGS (5)
  1. DECADRON [Suspect]
     Indication: MULTIPLE MYELOMA
     Dosage: DAY 1,2,3,4,8,9,11,12 PER CYCLE
     Route: 048
     Dates: start: 20100913, end: 20100923
  2. DECADRON [Suspect]
     Dosage: DAY 1,2,4,5,8,9,11,12 PER CYCLE
     Route: 048
     Dates: start: 20101102, end: 20101112
  3. THALIDOMIDE [Suspect]
     Indication: MULTIPLE MYELOMA
     Dosage: QD 1-21 PER CYCLE
     Route: 048
     Dates: start: 20100913, end: 20100923
  4. VELCADE [Suspect]
     Indication: MULTIPLE MYELOMA
     Dosage: DAYS 1,4,8,11 PER CYCLE
     Route: 042
     Dates: start: 20100913, end: 20100923
  5. VELCADE [Suspect]
     Dosage: DAYS 1,4,8,11 PER CYCLE
     Route: 042
     Dates: start: 20101102, end: 20101112

REACTIONS (7)
  - ANAEMIA [None]
  - ASTHENIA [None]
  - DIARRHOEA [None]
  - HAEMATOCHEZIA [None]
  - HYPOTENSION [None]
  - PAIN IN EXTREMITY [None]
  - VOMITING [None]
